FAERS Safety Report 10680748 (Version 2)
Quarter: 2014Q4

REPORT INFORMATION
  Report Type: Spontaneous
  Country: US (occurrence: US)
  Receive Date: 20141229
  Receipt Date: 20141229
  Transmission Date: 20150529
  Serious: Yes (Hospitalization)
  Sender: FDA-Public Use
  Company Number: US-SANOFI-AVENTIS-2012SA028547

PATIENT
  Age: 87 Year
  Sex: Female

DRUGS (25)
  1. PLAVIX [Suspect]
     Active Substance: CLOPIDOGREL BISULFATE
     Indication: ARTERIAL OCCLUSIVE DISEASE
     Route: 048
     Dates: start: 20060116, end: 20111117
  2. HYDROCHLOROTHIAZIDE. [Concomitant]
     Active Substance: HYDROCHLOROTHIAZIDE
  3. LIPITOR [Concomitant]
     Active Substance: ATORVASTATIN CALCIUM
  4. ZOLPIDEM TARTRATE. [Concomitant]
     Active Substance: ZOLPIDEM TARTRATE
  5. DOXEPIN [Concomitant]
     Active Substance: DOXEPIN
  6. NADOLOL. [Concomitant]
     Active Substance: NADOLOL
  7. ASPIRIN. [Concomitant]
     Active Substance: ASPIRIN
  8. VYTORIN [Concomitant]
     Active Substance: EZETIMIBE\SIMVASTATIN
  9. CIPROFLOXACIN. [Concomitant]
     Active Substance: CIPROFLOXACIN
  10. DICLOFENAC [Concomitant]
     Active Substance: DICLOFENAC
  11. BUPROPION HYDROCHLORIDE. [Concomitant]
     Active Substance: BUPROPION HYDROCHLORIDE
  12. EXCEDRIN [Concomitant]
     Active Substance: ACETAMINOPHEN\ASPIRIN\CAFFEINE
  13. ZYVOX [Concomitant]
     Active Substance: LINEZOLID
  14. HYDROCODONE [Concomitant]
     Active Substance: HYDROCODONE
     Dosage: Q6H PRN
  15. TRIAMTERENE. [Concomitant]
     Active Substance: TRIAMTERENE
  16. METFORMIN HYDROCHLORIDE. [Concomitant]
     Active Substance: METFORMIN HYDROCHLORIDE
  17. CLINDAMYCIN [Concomitant]
     Active Substance: CLINDAMYCIN\CLINDAMYCIN PHOSPHATE
  18. AMLODIPINE [Concomitant]
     Active Substance: AMLODIPINE BESYLATE
  19. NORVASC [Concomitant]
     Active Substance: AMLODIPINE BESYLATE
  20. SIMVASTATIN. [Concomitant]
     Active Substance: SIMVASTATIN
     Route: 048
  21. PENICILLIN NOS [Concomitant]
     Active Substance: PENICILLIN
  22. HERBAL NOS [Concomitant]
     Active Substance: HERBALS
  23. BENAZEPRIL HYDROCHLORIDE. [Concomitant]
     Active Substance: BENAZEPRIL HYDROCHLORIDE
  24. METHOTREXATE [Concomitant]
     Active Substance: METHOTREXATE
  25. DIAZOXIDE [Concomitant]
     Active Substance: DIAZOXIDE

REACTIONS (3)
  - Ill-defined disorder [Unknown]
  - Peptic ulcer [Unknown]
  - Gastrointestinal haemorrhage [Unknown]
